FAERS Safety Report 14708487 (Version 2)
Quarter: 2018Q3

REPORT INFORMATION
  Report Type: Spontaneous
  Country: US (occurrence: US)
  Receive Date: 20180403
  Receipt Date: 20180928
  Transmission Date: 20181010
  Serious: Yes (Other)
  Sender: FDA-Public Use
  Company Number: US-ASTRAZENECA-2018SE39812

PATIENT
  Age: 56 Year
  Sex: Female
  Weight: 204.1 kg

DRUGS (89)
  1. ADVAIR HFA [Concomitant]
     Active Substance: FLUTICASONE PROPIONATE\SALMETEROL XINAFOATE
     Indication: CHRONIC OBSTRUCTIVE PULMONARY DISEASE
     Dates: start: 2013, end: 2017
  2. ADVAIR HFA [Concomitant]
     Active Substance: FLUTICASONE PROPIONATE\SALMETEROL XINAFOATE
     Indication: CHRONIC OBSTRUCTIVE PULMONARY DISEASE
     Dosage: ADVAIR DISKU 250/50?USE TWICE A DAY
     Dates: start: 20131108
  3. FUROSEMIDE. [Concomitant]
     Active Substance: FUROSEMIDE
     Indication: FLUID RETENTION
     Dates: start: 2010, end: 2017
  4. FUROSEMIDE. [Concomitant]
     Active Substance: FUROSEMIDE
     Indication: FLUID RETENTION
     Dosage: TAKE ONE TABLET BY MOUTH ONCE DAILY OR TWICE A DAY AS NEEDED
     Route: 048
     Dates: start: 20110319
  5. LEVOFLOXACIN. [Concomitant]
     Active Substance: LEVOFLOXACIN
     Indication: INFECTION
     Dates: start: 2012, end: 2017
  6. RANITIDINE. [Concomitant]
     Active Substance: RANITIDINE
     Indication: ABDOMINAL DISCOMFORT
     Dosage: ZANTAC?TAKE ONE TABLET TWICE A OA Y
     Route: 048
     Dates: start: 20041030
  7. VIOXX [Concomitant]
     Active Substance: ROFECOXIB
     Indication: INFLAMMATION
     Dosage: TAKE ONE TABLET ONCE DAILY WITH FOOD
     Route: 048
     Dates: start: 20021101
  8. VIOXX [Concomitant]
     Active Substance: ROFECOXIB
     Indication: PAIN
     Dosage: TAKE ONE TABLET ONCE DAILY WITH FOOD
     Route: 048
     Dates: start: 20021101
  9. ZOLOFT [Concomitant]
     Active Substance: SERTRALINE HYDROCHLORIDE
     Route: 048
     Dates: start: 20021127
  10. METHADONE [Concomitant]
     Active Substance: METHADONE HYDROCHLORIDE
     Indication: PAIN
     Route: 048
     Dates: start: 20101101
  11. KETOCONAZOLE. [Concomitant]
     Active Substance: KETOCONAZOLE
     Indication: RASH
     Dosage: APPLY TO AFFECTED AREA TWICE A DAY FOR FUNGAL RASH
     Dates: start: 20110228
  12. NYSTATIN. [Concomitant]
     Active Substance: NYSTATIN
     Indication: INFECTION
     Dates: start: 2014, end: 2017
  13. PROMETHAZINE [Concomitant]
     Active Substance: PROMETHAZINE\PROMETHAZINE HYDROCHLORIDE
     Indication: NAUSEA
     Route: 048
     Dates: start: 20021026
  14. TRAMADOL. [Concomitant]
     Active Substance: TRAMADOL
     Indication: PAIN
     Dates: start: 2009, end: 2017
  15. SPIRIVA [Concomitant]
     Active Substance: TIOTROPIUM BROMIDE MONOHYDRATE
     Indication: CHRONIC OBSTRUCTIVE PULMONARY DISEASE
     Dosage: INHALE 1 CAPSULE BY INHALATION ROUTE ONCE DAILY
     Dates: start: 20130328
  16. ALBUTEROL. [Concomitant]
     Active Substance: ALBUTEROL
     Indication: CHRONIC OBSTRUCTIVE PULMONARY DISEASE
     Dates: start: 2012, end: 2016
  17. POTASSIUM [Concomitant]
     Active Substance: POTASSIUM
     Indication: GASTROINTESTINAL DISORDER
     Dates: start: 2015, end: 2017
  18. SKELAXIN [Concomitant]
     Active Substance: METAXALONE
     Dosage: TAKE ONE TABLET OR 2 TABLETS 3 TIMES DAILY
     Route: 048
     Dates: start: 20021003
  19. BACLOFEN. [Concomitant]
     Active Substance: BACLOFEN
     Indication: MUSCLE SPASMS
     Route: 048
     Dates: start: 20021015
  20. CELEBREX [Concomitant]
     Active Substance: CELECOXIB
     Route: 048
     Dates: start: 20030319
  21. BENZONATATE. [Concomitant]
     Active Substance: BENZONATATE
     Indication: COUGH
     Route: 048
     Dates: start: 20081020
  22. PRILOSEC [Suspect]
     Active Substance: OMEPRAZOLE MAGNESIUM
     Indication: GASTROOESOPHAGEAL REFLUX DISEASE
     Route: 048
     Dates: start: 2002, end: 2017
  23. METOLAZONE. [Concomitant]
     Active Substance: METOLAZONE
     Indication: BLOOD PRESSURE ABNORMAL
     Dosage: TAKE 1 TABLET (5 MG) BY ORAL ROUTE ONCE DAILY FOR 4 DAYS
     Route: 048
     Dates: start: 20130709
  24. FLUTICASONE. [Concomitant]
     Active Substance: FLUTICASONE
     Indication: CHRONIC OBSTRUCTIVE PULMONARY DISEASE
     Dates: start: 2013, end: 2017
  25. AMOX?CLAV [Concomitant]
     Active Substance: AMOXICILLIN\CLAVULANATE POTASSIUM
     Indication: INFECTION
     Dosage: AMOXILICLAVULANTE 5OOMG/125MG?TAKE ONE TABLET TWICE A DAY WITH FOOD
     Route: 048
     Dates: start: 20020113
  26. CARISOPRODOL. [Concomitant]
     Active Substance: CARISOPRODOL
     Indication: MUSCLE RELAXANT THERAPY
     Dates: start: 2002, end: 2004
  27. MELOXICAM. [Concomitant]
     Active Substance: MELOXICAM
     Indication: ARTHRITIS
     Dates: start: 2015, end: 2016
  28. BEXTRA [Concomitant]
     Active Substance: VALDECOXIB
     Indication: INFLAMMATION
     Route: 048
     Dates: start: 20021015
  29. HYOMAX [Concomitant]
     Active Substance: HYOSCYAMINE SULFATE
     Dosage: TAKE ONE TABLET 4 TIMES DAILY BEFORE MEALS AND AT BEDTIME
     Route: 060
     Dates: start: 20021113
  30. CIPROFLOXACIN. [Concomitant]
     Active Substance: CIPROFLOXACIN
     Route: 048
     Dates: start: 20110817
  31. ASPIRIN. [Concomitant]
     Active Substance: ASPIRIN
     Route: 048
     Dates: start: 20131025
  32. TOPIRAMATE. [Concomitant]
     Active Substance: TOPIRAMATE
     Indication: MIGRAINE
     Dosage: TOPAMAX?TAKE TWO TABLETS TWICE A DAY
     Route: 048
     Dates: start: 20021015
  33. FLUTICASONE. [Concomitant]
     Active Substance: FLUTICASONE
     Indication: CHRONIC OBSTRUCTIVE PULMONARY DISEASE
     Dosage: FLONASE?INJECT TWO SPRAYS IN EACH NOSTRIL ONCE DAILY
     Dates: start: 20030113
  34. ATENOLOL. [Concomitant]
     Active Substance: ATENOLOL
     Route: 048
     Dates: start: 20021003
  35. VERAPAMIL [Concomitant]
     Active Substance: VERAPAMIL HYDROCHLORIDE
     Dosage: TAKE ONE TABLET TWICE A DAY FOR HEADACHE PREVENTION
     Route: 048
     Dates: start: 20021209
  36. FLUCONAZOLE. [Concomitant]
     Active Substance: FLUCONAZOLE
     Dosage: TAKE ONE TABLET NOW THEN REPEAT IN 3 DAYS
     Route: 048
     Dates: start: 20110228
  37. AMLODIPINE [Concomitant]
     Active Substance: AMLODIPINE BESYLATE
     Indication: BLOOD PRESSURE ABNORMAL
     Route: 048
     Dates: start: 20121222
  38. METHADONE [Concomitant]
     Active Substance: METHADONE HYDROCHLORIDE
     Indication: PAIN
     Dates: start: 2010, end: 2017
  39. HYDROCODONE BITARTRATE AND ACETAMINOPHEN [Concomitant]
     Active Substance: ACETAMINOPHEN\HYDROCODONE BITARTRATE
     Indication: PAIN
     Dates: start: 2002, end: 2017
  40. TOPIRAMATE. [Concomitant]
     Active Substance: TOPIRAMATE
     Indication: MIGRAINE
     Dates: start: 2014, end: 2017
  41. XOPENEX [Concomitant]
     Active Substance: LEVALBUTEROL HYDROCHLORIDE
     Indication: CHRONIC OBSTRUCTIVE PULMONARY DISEASE
     Dates: start: 2013, end: 2017
  42. XOPENEX [Concomitant]
     Active Substance: LEVALBUTEROL HYDROCHLORIDE
     Indication: CHRONIC OBSTRUCTIVE PULMONARY DISEASE
     Dosage: HFA INHALER?INHALE 2 PUFFS (90 MCG) BY INHALATION ROUTE EVERY 4?6 HOURS FOR 30 DAY
     Dates: start: 20130605
  43. TRAZODONE [Concomitant]
     Active Substance: TRAZODONE HYDROCHLORIDE
     Indication: DEPRESSION
     Dates: start: 2015, end: 2017
  44. LEVOFLOXACIN. [Concomitant]
     Active Substance: LEVOFLOXACIN
     Indication: INFECTION
     Route: 048
     Dates: start: 20121130
  45. HYDROCHLOROTHIAZIDE. [Concomitant]
     Active Substance: HYDROCHLOROTHIAZIDE
     Route: 048
     Dates: start: 20021015
  46. TRIMOX [Concomitant]
     Active Substance: AMOXICILLIN
     Route: 048
     Dates: start: 20030113
  47. RELPAX [Concomitant]
     Active Substance: ELETRIPTAN HYDROBROMIDE
     Dosage: TAKE ONE TABLET AT ONSET OF HEADACHE AS DIRECTED BY DOCTOR
     Route: 048
     Dates: start: 20030430
  48. GABAPENTIN. [Concomitant]
     Active Substance: GABAPENTIN
     Route: 048
     Dates: start: 20120110
  49. AGGRENOX [Concomitant]
     Active Substance: ASPIRIN\DIPYRIDAMOLE
     Dosage: 200?25MG?TAKE ONE CAPSULE LWLCE A DAY
     Route: 048
     Dates: start: 20120113
  50. HYDROCODONE BITARTRATE AND ACETAMINOPHEN [Concomitant]
     Active Substance: ACETAMINOPHEN\HYDROCODONE BITARTRATE
     Indication: PAIN
     Dosage: 7.5/650?TAKE ONE TABLET EVERY 8 HOURS AS NEEDED
     Route: 048
     Dates: start: 20021003
  51. CYCLOBENZAPRINE. [Concomitant]
     Active Substance: CYCLOBENZAPRINE
     Indication: MUSCLE RELAXANT THERAPY
     Dates: start: 2009, end: 2017
  52. CYCLOBENZAPRINE. [Concomitant]
     Active Substance: CYCLOBENZAPRINE
     Indication: MUSCLE RELAXANT THERAPY
     Route: 048
     Dates: start: 20090331
  53. ALBUTEROL. [Concomitant]
     Active Substance: ALBUTEROL
     Indication: CHRONIC OBSTRUCTIVE PULMONARY DISEASE
     Dosage: INHALE ONE PUFF EVERY 6 HOURS AS NEEDED
     Dates: start: 20121103
  54. RANITIDINE. [Concomitant]
     Active Substance: RANITIDINE
     Indication: ABDOMINAL DISCOMFORT
     Route: 048
     Dates: start: 20021002
  55. CLONAZEPAM. [Concomitant]
     Active Substance: CLONAZEPAM
     Route: 048
     Dates: start: 20021113
  56. MEPROZINE [Concomitant]
     Indication: HEADACHE
     Dosage: 50?25?TAKE ONE CAPSULE EVERY 4 HOURS AS NEEDED
     Route: 048
     Dates: start: 20021209
  57. RISPERDAL [Concomitant]
     Active Substance: RISPERIDONE
     Route: 048
     Dates: start: 20030215
  58. METRONIDAZOLE. [Concomitant]
     Active Substance: METRONIDAZOLE
     Indication: INFECTION
     Route: 048
     Dates: start: 20031230
  59. NEXIUM [Suspect]
     Active Substance: ESOMEPRAZOLE MAGNESIUM
     Indication: GASTROOESOPHAGEAL REFLUX DISEASE
     Dosage: GENERIC (ESOMEPRAZOLE)?40MG. Q.D.
     Route: 048
     Dates: start: 2017
  60. NEXIUM [Suspect]
     Active Substance: ESOMEPRAZOLE MAGNESIUM
     Indication: GASTROOESOPHAGEAL REFLUX DISEASE
     Route: 048
     Dates: start: 20120107
  61. NYSTATIN. [Concomitant]
     Active Substance: NYSTATIN
     Indication: INFECTION
     Dosage: CRM 100MU PERR 30GM?APPL^( TO THE AFFECTED AREA(S) BY TOPICAL ROUTE 3 TIMES PER DAY FOR 30 DAYS
     Dates: start: 20140218
  62. PROMETHAZINE [Concomitant]
     Active Substance: PROMETHAZINE\PROMETHAZINE HYDROCHLORIDE
     Indication: NAUSEA
     Dates: start: 2002, end: 2017
  63. PROMETHAZINE [Concomitant]
     Active Substance: PROMETHAZINE\PROMETHAZINE HYDROCHLORIDE
     Indication: MULTIPLE ALLERGIES
     Dates: start: 2002, end: 2017
  64. PROMETHAZINE [Concomitant]
     Active Substance: PROMETHAZINE\PROMETHAZINE HYDROCHLORIDE
     Indication: MULTIPLE ALLERGIES
     Route: 048
     Dates: start: 20021026
  65. TRAMADOL. [Concomitant]
     Active Substance: TRAMADOL
     Indication: PAIN
     Route: 048
     Dates: start: 20091204
  66. SPIRIVA [Concomitant]
     Active Substance: TIOTROPIUM BROMIDE MONOHYDRATE
     Indication: CHRONIC OBSTRUCTIVE PULMONARY DISEASE
     Dates: start: 2013, end: 2017
  67. ONDANSETRON [Concomitant]
     Active Substance: ONDANSETRON
     Indication: NAUSEA
     Dates: start: 2013, end: 2015
  68. ONDANSETRON [Concomitant]
     Active Substance: ONDANSETRON
     Indication: NAUSEA
     Route: 048
     Dates: start: 20130605
  69. AMOX?CLAV [Concomitant]
     Active Substance: AMOXICILLIN\CLAVULANATE POTASSIUM
     Indication: INFECTION
     Dosage: 2003,2012,2013,2015,2016,2017
  70. AMOX?CLAV [Concomitant]
     Active Substance: AMOXICILLIN\CLAVULANATE POTASSIUM
     Indication: INFECTION
     Dosage: AUGMENTIN?TAKE ONE TABLET TWICE A DAY WITH FOOD
     Route: 048
     Dates: start: 20021127
  71. IBUPROFEN. [Concomitant]
     Active Substance: IBUPROFEN
     Indication: PAIN
     Dates: start: 2003, end: 2013
  72. BEXTRA [Concomitant]
     Active Substance: VALDECOXIB
     Indication: PAIN
     Route: 048
     Dates: start: 20021015
  73. ENDOCET [Concomitant]
     Active Substance: ACETAMINOPHEN\OXYCODONE HYDROCHLORIDE
     Indication: HEADACHE
     Dosage: 5?325MG?TAKE ONE TABLET EVERY 6 HOURS AS NEEDED
     Route: 048
     Dates: start: 20030923
  74. SUCRALFATE. [Concomitant]
     Active Substance: SUCRALFATE
     Dosage: TAKE ONE TABLET SY MOUTH 4 TIMES DAILY ON EMPTY STOMACH 1 HOUR
     Route: 048
     Dates: start: 20120306
  75. LEVOFLOXACIN. [Concomitant]
     Active Substance: LEVOFLOXACIN
     Indication: INFECTION
     Route: 048
     Dates: start: 20121130
  76. NEXIUM [Suspect]
     Active Substance: ESOMEPRAZOLE MAGNESIUM
     Indication: GASTROOESOPHAGEAL REFLUX DISEASE
     Route: 048
     Dates: start: 2002, end: 2017
  77. PRILOSEC [Suspect]
     Active Substance: OMEPRAZOLE MAGNESIUM
     Indication: GASTROOESOPHAGEAL REFLUX DISEASE
     Route: 048
     Dates: start: 2002, end: 2003
  78. PRILOSEC [Suspect]
     Active Substance: OMEPRAZOLE MAGNESIUM
     Indication: GASTROOESOPHAGEAL REFLUX DISEASE
     Route: 048
     Dates: start: 20021113
  79. METOLAZONE. [Concomitant]
     Active Substance: METOLAZONE
     Indication: BLOOD PRESSURE ABNORMAL
     Dates: start: 2013, end: 2016
  80. POTASSIUM [Concomitant]
     Active Substance: POTASSIUM
     Indication: GASTROINTESTINAL DISORDER
     Dosage: KLOR?CON?TAKE ONE TABLET BY MOUTH ONCE DAILY
     Route: 048
     Dates: start: 20101123
  81. IBUPROFEN. [Concomitant]
     Active Substance: IBUPROFEN
     Indication: PAIN
     Route: 048
     Dates: start: 20030113
  82. CARISOPRODOL. [Concomitant]
     Active Substance: CARISOPRODOL
     Indication: MUSCLE RELAXANT THERAPY
     Route: 048
     Dates: start: 20021002
  83. DALIRESP [Concomitant]
     Active Substance: ROFLUMILAST
     Indication: ANTIINFLAMMATORY THERAPY
     Dates: start: 2013, end: 2017
  84. ACCUPRIL [Concomitant]
     Active Substance: QUINAPRIL HYDROCHLORIDE
     Indication: BLOOD PRESSURE ABNORMAL
     Route: 048
     Dates: start: 20021015
  85. DIETHYLPROPION [Concomitant]
     Active Substance: DIETHYLPROPION
     Indication: MEDICAL DIET
     Route: 048
     Dates: start: 20021015
  86. IMITREX [Concomitant]
     Active Substance: SUMATRIPTAN SUCCINATE
     Dosage: TAKE ONE TABLET AT ONSET OF HEADACHE MAY REPEAT IN 1 HOUR IF NEEDED
     Route: 048
     Dates: start: 20021209
  87. MORPHINE [Concomitant]
     Active Substance: MORPHINE
     Indication: PAIN
     Route: 048
     Dates: start: 20090501
  88. CLINDAMYCIN. [Concomitant]
     Active Substance: CLINDAMYCIN
     Dosage: TAKE 1 CAPSULE BY ORAL ROUTE 4 TIMES A DAY FOR 7 DAYS
     Route: 048
     Dates: start: 20131101
  89. SYMBICORT [Concomitant]
     Active Substance: BUDESONIDE\FORMOTEROL FUMARATE DIHYDRATE
     Dosage: 160/4.5 MEG INHALER?INHALE 2 PUFFS BY INHALATION ROUTE 2 TIMES PER DAY IN THE MORNING
     Dates: start: 20140219

REACTIONS (5)
  - End stage renal disease [Not Recovered/Not Resolved]
  - Chronic kidney disease [Not Recovered/Not Resolved]
  - Acute kidney injury [Not Recovered/Not Resolved]
  - Renal impairment [Unknown]
  - Nephrogenic anaemia [Unknown]

NARRATIVE: CASE EVENT DATE: 2017
